FAERS Safety Report 5341628-4 (Version None)
Quarter: 2007Q2

REPORT INFORMATION
  Report Type: 
  Country: None (occurrence: None)
  Receive Date: 20070530
  Receipt Date: 20070516
  Transmission Date: 20071010
  Serious: Yes (Other)
  Sender: FDA-Public Use
  Company Number: CHNY2006JP03278

PATIENT
  Sex: Male

DRUGS (10)
  1. NICOTINE [Suspect]
     Indication: SMOKING CESSATION THERAPY
     Dosage: TRANSDERMAL
     Route: 062
  2. CHLORPROMAZINE HCL [Suspect]
  3. VEGETAMIN A (CHLORPROMAZINE HYDROCHLORIDE, PHENOBARBITAL, PROMETHAZINE [Concomitant]
  4. HALOPERIDOL [Concomitant]
  5. ZOTEPINE (ZOTEPINE) [Concomitant]
  6. AKINETON /AUS/ (BIPERIDEN HYDROCHLORIDE) [Concomitant]
  7. FLUNITRAZEPAM (FLUNITRAZEPAM) [Concomitant]
  8. DORAL [Concomitant]
  9. PYRETHIA (PROMETHAZINE HYDROCHLOLRIDE) [Concomitant]
  10. BEZATATE (BEZAFIBRATE) [Concomitant]

REACTIONS (1)
  - PARKINSONISM [None]
